FAERS Safety Report 7302118-2 (Version None)
Quarter: 2011Q1

REPORT INFORMATION
  Report Type: 
  Country: None (occurrence: None)
  Receive Date: 20110218
  Receipt Date: 20110209
  Transmission Date: 20110831
  Serious: Yes (Hospitalization, Other)
  Sender: FDA-Public Use
  Company Number: US-MERCK-0908USA01685

PATIENT
  Age: 52 Year
  Sex: Female

DRUGS (5)
  1. FOSAMAX [Suspect]
     Indication: OSTEOPOROSIS
     Route: 048
     Dates: end: 20060801
  2. SYNTHROID [Concomitant]
     Indication: HYPOTHYROIDISM
     Route: 065
  3. FOSAMAX [Suspect]
     Route: 048
     Dates: start: 19990819, end: 19990916
  4. FOSAMAX [Suspect]
     Indication: CALCIUM DEFICIENCY
     Route: 048
     Dates: end: 20060801
  5. FOSAMAX [Suspect]
     Route: 048
     Dates: start: 19990819, end: 19990916

REACTIONS (19)
  - WEIGHT DECREASED [None]
  - PULMONARY FIBROSIS [None]
  - IRON DEFICIENCY [None]
  - LUNG NEOPLASM [None]
  - DIVERTICULUM [None]
  - GASTRITIS EROSIVE [None]
  - PERICARDIAL EFFUSION [None]
  - UPPER LIMB FRACTURE [None]
  - JAW FRACTURE [None]
  - AORTIC VALVE INCOMPETENCE [None]
  - GASTROINTESTINAL DISORDER [None]
  - RED BLOOD CELL SEDIMENTATION RATE INCREASED [None]
  - OSTEOMYELITIS [None]
  - BILIARY DILATATION [None]
  - OSTEONECROSIS OF JAW [None]
  - JOINT DISLOCATION [None]
  - CARDIAC MURMUR [None]
  - ANAEMIA [None]
  - ELECTROCARDIOGRAM ST SEGMENT ABNORMAL [None]
